FAERS Safety Report 5501984-0 (Version None)
Quarter: 2007Q4

REPORT INFORMATION
  Report Type: 
  Country: None (occurrence: None)
  Receive Date: 20071030
  Receipt Date: 20071026
  Transmission Date: 20080405
  Serious: Yes (Death)
  Sender: FDA-Public Use
  Company Number: A0690088A

PATIENT
  Age: 69 Year
  Sex: Male

DRUGS (2)
  1. FLONASE [Suspect]
     Indication: RHINITIS
     Dosage: 1SPR PER DAY
     Route: 045
  2. NO CONCURRENT MEDICATION [Concomitant]

REACTIONS (1)
  - DEATH [None]
